FAERS Safety Report 20326703 (Version 1)
Quarter: 2022Q1

REPORT INFORMATION
  Report Type: Spontaneous
  Country: SY (occurrence: SY)
  Receive Date: 20220112
  Receipt Date: 20220112
  Transmission Date: 20220423
  Serious: No
  Sender: FDA-Public Use
  Company Number: SY-LUPIN PHARMACEUTICALS INC.-2021-26835

PATIENT
  Age: 17 Year
  Sex: Female

DRUGS (1)
  1. TRIAMCINOLONE ACETONIDE [Suspect]
     Active Substance: TRIAMCINOLONE ACETONIDE
     Indication: Retinopathy solar
     Dosage: 0.1 MILLILITER (INJECTION WAS ADMINISTERED INSIDE THE SUPRACHOROIDAL SPACE WITH CUSTOM-MADE NEEDLE)
     Route: 047

REACTIONS (1)
  - Off label use [Unknown]
